FAERS Safety Report 11910228 (Version 2)
Quarter: 2016Q1

REPORT INFORMATION
  Report Type: Spontaneous
  Country: IT (occurrence: IT)
  Receive Date: 20160112
  Receipt Date: 20160112
  Transmission Date: 20160526
  Serious: No
  Sender: FDA-Public Use
  Company Number: IT-JNJFOC-20160105166

PATIENT
  Age: 28 Year
  Sex: Female
  Weight: 55 kg

DRUGS (2)
  1. DUROGESIC [Suspect]
     Active Substance: FENTANYL
     Indication: PRODUCT USED FOR UNKNOWN INDICATION
     Route: 062
  2. DUROGESIC [Suspect]
     Active Substance: FENTANYL
     Indication: PRODUCT USED FOR UNKNOWN INDICATION
     Route: 062
     Dates: start: 20160106, end: 20160106

REACTIONS (7)
  - Pruritus [Unknown]
  - Trismus [Unknown]
  - Agitation [Unknown]
  - Sopor [Unknown]
  - Rash [Unknown]
  - Drug administration error [Unknown]
  - Self-medication [Unknown]

NARRATIVE: CASE EVENT DATE: 20160106
